FAERS Safety Report 7522859-1 (Version None)
Quarter: 2011Q2

REPORT INFORMATION
  Report Type: 
  Country: None (occurrence: None)
  Receive Date: 20110603
  Receipt Date: 20110530
  Transmission Date: 20111010
  Serious: Yes (Hospitalization)
  Sender: FDA-Public Use
  Company Number: JP-ABBOTT-10P-087-0635118-00

PATIENT
  Sex: Female

DRUGS (18)
  1. LIPIDIL [Suspect]
     Indication: HYPERLIPIDAEMIA
     Route: 048
  2. SMOUSAIKOTOUKAKIKYOUSEKKOU [Suspect]
     Indication: DIURETIC THERAPY
  3. VOALLA [Suspect]
     Indication: ECZEMA
     Route: 062
     Dates: start: 20070810
  4. ADALAT [Suspect]
     Indication: HYPERTENSION
     Route: 048
  5. KAKKON-TO [Suspect]
     Indication: DIURETIC THERAPY
  6. KAKKONTOUKASENKYUUSHINI [Suspect]
     Indication: DIURETIC THERAPY
  7. ACTOS [Suspect]
     Indication: DIABETES MELLITUS
     Route: 048
     Dates: start: 20070901, end: 20071020
  8. JINSO-IN [Suspect]
     Indication: ANTITUSSIVE THERAPY
     Route: 048
     Dates: start: 20070901
  9. NIPOLAZIN [Suspect]
     Indication: ECZEMA
     Route: 048
     Dates: start: 20070810
  10. KAKKON-TO [Suspect]
     Indication: ANTITUSSIVE THERAPY
     Route: 048
     Dates: start: 20070901
  11. EPL [Suspect]
     Indication: LIVER DISORDER
     Route: 048
     Dates: start: 20070901
  12. SMOUSAIKOTOUKAKIKYOUSEKKOU [Suspect]
     Indication: ANTITUSSIVE THERAPY
     Route: 048
     Dates: start: 20070901
  13. KAKKONTOUKASENKYUUSHINI [Suspect]
     Indication: ANTITUSSIVE THERAPY
     Route: 048
     Dates: start: 20070901
  14. VOGLIBOSE [Suspect]
     Indication: DIABETES MELLITUS
     Route: 048
     Dates: start: 20070901, end: 20071020
  15. DIOVAN [Suspect]
     Indication: HYPERTENSION
     Route: 048
     Dates: start: 20060101
  16. OLOPATADINE HCL [Suspect]
     Indication: ECZEMA
     Route: 048
     Dates: start: 20070810
  17. URSO 250 [Suspect]
     Indication: LIVER DISORDER
     Route: 048
     Dates: start: 20070901
  18. JINSO-IN [Suspect]
     Indication: DIURETIC THERAPY

REACTIONS (7)
  - NASOPHARYNGITIS [None]
  - ECZEMA [None]
  - RENAL IMPAIRMENT [None]
  - DIABETES MELLITUS [None]
  - INTERSTITIAL LUNG DISEASE [None]
  - HEPATIC FUNCTION ABNORMAL [None]
  - PYREXIA [None]
